FAERS Safety Report 23513709 (Version 1)
Quarter: 2024Q1

REPORT INFORMATION
  Report Type: Spontaneous
  Country: US (occurrence: US)
  Receive Date: 20240212
  Receipt Date: 20240212
  Transmission Date: 20240409
  Serious: No
  Sender: FDA-Public Use
  Company Number: US-SA-SAC20240205001295

PATIENT
  Age: 72 Year
  Sex: Female

DRUGS (9)
  1. DUPIXENT [Suspect]
     Active Substance: DUPILUMAB
     Indication: Dermatitis atopic
     Dosage: 300 MG, QOW
     Route: 058
     Dates: start: 20230301
  2. LASIX [Concomitant]
     Active Substance: FUROSEMIDE
  3. HYDROXYZINE HYDROCHLORIDE [Concomitant]
     Active Substance: HYDROXYZINE HYDROCHLORIDE
     Dosage: UNK
  4. FAMOTIDINE [Concomitant]
     Active Substance: FAMOTIDINE
     Dosage: UNK
  5. METAMUCIL [Concomitant]
     Active Substance: PLANTAGO SEED
  6. MINERALS\VITAMINS [Concomitant]
     Active Substance: MINERALS\VITAMINS
  7. LOSARTAN POTASSIUM [Concomitant]
     Active Substance: LOSARTAN POTASSIUM
     Dosage: UNK
  8. LEFLUNOMIDE [Concomitant]
     Active Substance: LEFLUNOMIDE
     Dosage: UNK
  9. TACROLIMUS [Concomitant]
     Active Substance: TACROLIMUS

REACTIONS (1)
  - Hypertension [Unknown]
